FAERS Safety Report 12098531 (Version 1)
Quarter: 2016Q1

REPORT INFORMATION
  Report Type: Spontaneous
  Country: PE (occurrence: PE)
  Receive Date: 20160222
  Receipt Date: 20160222
  Transmission Date: 20160526
  Serious: Yes (Other)
  Sender: FDA-Public Use
  Company Number: PE-PFIZER INC-2016014068

PATIENT
  Age: 84 Year
  Sex: Female

DRUGS (1)
  1. XALATAN [Suspect]
     Active Substance: LATANOPROST
     Indication: INTRAOCULAR PRESSURE TEST ABNORMAL
     Dosage: 1 GTT, DAILY IN EACH EYE
     Route: 047

REACTIONS (2)
  - Eye irritation [Unknown]
  - Cataract [Unknown]

NARRATIVE: CASE EVENT DATE: 201407
